FAERS Safety Report 23549122 (Version 1)
Quarter: 2024Q1

REPORT INFORMATION
  Report Type: Spontaneous
  Country: ES (occurrence: ES)
  Receive Date: 20240221
  Receipt Date: 20240221
  Transmission Date: 20240409
  Serious: Yes (Hospitalization)
  Sender: FDA-Public Use
  Company Number: None

PATIENT
  Age: 57 Year
  Sex: Female

DRUGS (3)
  1. VOTRIENT [Suspect]
     Active Substance: PAZOPANIB HYDROCHLORIDE
     Indication: Desmoid tumour
     Dosage: 800 MG, QD (60 TABLETS)
     Route: 048
     Dates: start: 20231128, end: 20240205
  2. ENALAPRIL/HIDROCLOROTIAZIDA VIR [Concomitant]
     Indication: Hypertension
     Dosage: 1 DOSAGE FORM, QD (28 TABLETS)
     Route: 048
     Dates: start: 20231214, end: 20240210
  3. LEVOTHYROXINE SODIUM [Concomitant]
     Active Substance: LEVOTHYROXINE SODIUM
     Indication: Hypothyroidism
     Dosage: 75 UG, QD (100 TABLETS)
     Route: 048
     Dates: start: 20240119

REACTIONS (1)
  - Pancreatitis acute [Recovered/Resolved]

NARRATIVE: CASE EVENT DATE: 20240205
